FAERS Safety Report 16062003 (Version 1)
Quarter: 2019Q1

REPORT INFORMATION
  Report Type: Spontaneous
  Country: US (occurrence: US)
  Receive Date: 20190312
  Receipt Date: 20190312
  Transmission Date: 20190418
  Serious: No
  Sender: FDA-Public Use
  Company Number: US-ELI_LILLY_AND_COMPANY-US201902009303

PATIENT
  Sex: Female
  Weight: 124.74 kg

DRUGS (4)
  1. DEXILANT [Concomitant]
     Active Substance: DEXLANSOPRAZOLE
     Indication: PRODUCT USED FOR UNKNOWN INDICATION
     Dosage: 60 MG, DAILY
     Dates: start: 2002
  2. HUMIRA [Concomitant]
     Active Substance: ADALIMUMAB
     Indication: AUTOIMMUNE DISORDER
  3. TRULICITY [Suspect]
     Active Substance: DULAGLUTIDE
     Indication: PRODUCT USED FOR UNKNOWN INDICATION
     Dosage: UNK, UNKNOWN
     Route: 065
  4. METFORMIN [Concomitant]
     Active Substance: METFORMIN HYDROCHLORIDE
     Indication: DIABETES MELLITUS

REACTIONS (15)
  - Spinal disorder [Unknown]
  - Intervertebral disc protrusion [Unknown]
  - Immune system disorder [Unknown]
  - Urine output increased [Recovered/Resolved]
  - Dehydration [Recovered/Resolved]
  - Crohn^s disease [Unknown]
  - Muscular weakness [Unknown]
  - Muscle spasms [Unknown]
  - Blood potassium decreased [Recovered/Resolved]
  - Herpes zoster [Recovered/Resolved]
  - Back disorder [Unknown]
  - Constipation [Unknown]
  - Hypoaesthesia [Unknown]
  - Nervous system disorder [Unknown]
  - Malaise [Recovered/Resolved]

NARRATIVE: CASE EVENT DATE: 201707
